FAERS Safety Report 8231382-0 (Version None)
Quarter: 2012Q1

REPORT INFORMATION
  Report Type: 
  Country: None (occurrence: None)
  Receive Date: 20120323
  Receipt Date: 20120321
  Transmission Date: 20120608
  Serious: Yes (Hospitalization)
  Sender: FDA-Public Use
  Company Number: US-B.I. PHARMACEUTICALS,INC./RIDGEFIELD-2012-BP-05325BP

PATIENT
  Sex: Male

DRUGS (13)
  1. LOPRESSOR [Concomitant]
     Indication: HYPERTENSION
     Dosage: 75 MG
     Route: 048
  2. UROXATRAL [Concomitant]
     Indication: PROSTATIC DISORDER
     Dosage: 10 MG
     Route: 048
  3. DOMPERIDONE [Concomitant]
     Indication: ABDOMINAL DISCOMFORT
     Dosage: 40 MG
     Route: 048
  4. PROSCAR [Concomitant]
     Indication: PROSTATIC DISORDER
     Dosage: 5 MG
     Route: 048
  5. SPIRIVA [Suspect]
     Indication: CHRONIC OBSTRUCTIVE PULMONARY DISEASE
     Dosage: 18 MCG
     Route: 055
     Dates: start: 20040101
  6. SINGULAIR [Concomitant]
     Indication: CHRONIC OBSTRUCTIVE PULMONARY DISEASE
     Route: 048
  7. PREVACID [Concomitant]
     Indication: ABDOMINAL DISCOMFORT
     Dosage: 60 MG
     Route: 048
  8. ZETIA [Concomitant]
     Indication: CARDIAC DISORDER
     Dosage: 10 MG
     Route: 048
  9. MUCINEX [Concomitant]
     Indication: CHRONIC OBSTRUCTIVE PULMONARY DISEASE
     Dosage: 1200 MG
     Route: 048
  10. CAPTOPRIL [Concomitant]
     Indication: CARDIAC DISORDER
     Dosage: 150 MG
     Route: 048
  11. ADVAIR DISKUS 100/50 [Concomitant]
     Indication: CHRONIC OBSTRUCTIVE PULMONARY DISEASE
     Route: 055
  12. ASPIRIN [Concomitant]
     Indication: PROPHYLAXIS
     Dosage: 81 MG
     Route: 048
  13. LIPITOR [Concomitant]
     Indication: CARDIAC DISORDER
     Dosage: 80 MG
     Route: 048

REACTIONS (2)
  - DYSPNOEA [None]
  - PNEUMONIA [None]
